FAERS Safety Report 4835503-9 (Version None)
Quarter: 2005Q4

REPORT INFORMATION
  Report Type: 
  Country: None (occurrence: None)
  Receive Date: 20051123
  Receipt Date: 20051108
  Transmission Date: 20060501
  Serious: Yes (Hospitalization)
  Sender: FDA-Public Use
  Company Number: US-JNJFOC-20051102837

PATIENT
  Sex: Female
  Weight: 82.56 kg

DRUGS (2)
  1. REMICADE [Suspect]
     Route: 042
  2. REMICADE [Suspect]
     Indication: CROHN'S DISEASE
     Route: 042

REACTIONS (7)
  - DIABETES MELLITUS [None]
  - ELECTROCARDIOGRAM ABNORMAL [None]
  - HYPERGLYCAEMIA [None]
  - HYPOTENSION [None]
  - INFLUENZA [None]
  - PARALYSIS [None]
  - SERUM SICKNESS [None]
